FAERS Safety Report 8491561-4 (Version None)
Quarter: 2012Q3

REPORT INFORMATION
  Report Type: 
  Country: None (occurrence: None)
  Receive Date: 20120706
  Receipt Date: 20120629
  Transmission Date: 20120928
  Serious: Yes (Hospitalization)
  Sender: FDA-Public Use
  Company Number: US-JNJFOC-20120207867

PATIENT
  Age: 18 Year
  Sex: Female
  Weight: 54.8 kg

DRUGS (2)
  1. CONTRACEPTIVE [Concomitant]
     Indication: CONTRACEPTION
     Route: 048
  2. TYLENOL PM [Suspect]
     Indication: PRODUCT USED FOR UNKNOWN INDICATION
     Route: 048
     Dates: start: 20120203, end: 20120203

REACTIONS (5)
  - SELF INJURIOUS BEHAVIOUR [None]
  - TACHYCARDIA [None]
  - INTENTIONAL OVERDOSE [None]
  - HALLUCINATION [None]
  - CONFUSIONAL STATE [None]
